FAERS Safety Report 20121076 (Version 1)
Quarter: 2021Q4

REPORT INFORMATION
  Report Type: Spontaneous
  Country: US (occurrence: US)
  Receive Date: 20211127
  Receipt Date: 20211127
  Transmission Date: 20220303
  Serious: Yes (Hospitalization, Other)
  Sender: FDA-Public Use
  Company Number: US-TAKEDA-2021TUS073676

PATIENT
  Sex: Female
  Weight: 62 kg

DRUGS (11)
  1. GAMMAGARD LIQUID [Suspect]
     Active Substance: HUMAN IMMUNOGLOBULIN G
     Indication: Myasthenia gravis
     Dosage: 60 GRAM, Q4WEEKS
     Route: 065
     Dates: start: 201310
  2. ASPIRIN [Concomitant]
     Active Substance: ASPIRIN
  3. GABAPENTIN [Concomitant]
     Active Substance: GABAPENTIN
  4. CARVEDILOL [Concomitant]
     Active Substance: CARVEDILOL
  5. AMLODIPINE [Concomitant]
     Active Substance: AMLODIPINE BESYLATE
  6. BUMEX [Concomitant]
     Active Substance: BUMETANIDE
  7. HYDRALAZINE [Concomitant]
     Active Substance: HYDRALAZINE HYDROCHLORIDE
  8. IMURAN [Concomitant]
     Active Substance: AZATHIOPRINE
  9. SPIRONOLACTONE [Concomitant]
     Active Substance: SPIRONOLACTONE
  10. LIPITOR [Concomitant]
     Active Substance: ATORVASTATIN CALCIUM
  11. ISOSORBIDE MONONITRATE [Concomitant]
     Active Substance: ISOSORBIDE MONONITRATE

REACTIONS (2)
  - Thrombosis [Unknown]
  - Product use in unapproved indication [Unknown]
